FAERS Safety Report 8333324-6 (Version None)
Quarter: 2012Q2

REPORT INFORMATION
  Report Type: 
  Country: None (occurrence: None)
  Receive Date: 20120503
  Receipt Date: 20120425
  Transmission Date: 20120825
  Serious: Yes (Other)
  Sender: FDA-Public Use
  Company Number: US-UCBSA-056213

PATIENT
  Sex: Male

DRUGS (1)
  1. VIMPAT [Suspect]
     Route: 042

REACTIONS (1)
  - MYOCLONIC EPILEPSY [None]
